FAERS Safety Report 13537178 (Version 1)
Quarter: 2017Q2

REPORT INFORMATION
  Report Type: Spontaneous
  Country: JP (occurrence: JP)
  Receive Date: 20170511
  Receipt Date: 20170511
  Transmission Date: 20170830
  Serious: Yes (Death, Hospitalization, Other)
  Sender: FDA-Public Use
  Company Number: JP-APOPHARMA USA, INC.-2017AP012092

PATIENT
  Age: 56 Year
  Sex: Female

DRUGS (2)
  1. ALKERAN [Suspect]
     Active Substance: MELPHALAN
     Indication: PLASMA CELL MYELOMA
     Dosage: 8 MG, UNKNOWN
     Route: 065
     Dates: start: 199304
  2. PREDNISOLONE. [Concomitant]
     Active Substance: PREDNISOLONE
     Indication: PLASMA CELL MYELOMA
     Dosage: 40 MG, OTHER
     Route: 065
     Dates: start: 199304

REACTIONS (4)
  - Pancytopenia [Not Recovered/Not Resolved]
  - Disseminated intravascular coagulation [Unknown]
  - Sepsis [Fatal]
  - Acute promyelocytic leukaemia [Not Recovered/Not Resolved]

NARRATIVE: CASE EVENT DATE: 199409
